FAERS Safety Report 7442772-8 (Version None)
Quarter: 2011Q2

REPORT INFORMATION
  Report Type: 
  Country: None (occurrence: None)
  Receive Date: 20110428
  Receipt Date: 20110422
  Transmission Date: 20111010
  Serious: Yes (Hospitalization)
  Sender: FDA-Public Use
  Company Number: US-GILEAD-2011-0038750

PATIENT
  Sex: Female

DRUGS (1)
  1. LETAIRIS [Suspect]
     Indication: PRODUCT USED FOR UNKNOWN INDICATION
     Route: 048
     Dates: start: 20110404

REACTIONS (5)
  - UNEVALUABLE EVENT [None]
  - ANAEMIA [None]
  - PALPITATIONS [None]
  - HYPOTENSION [None]
  - TRANSFUSION [None]
